FAERS Safety Report 5594948-2 (Version None)
Quarter: 2008Q1

REPORT INFORMATION
  Report Type: 
  Country: None (occurrence: None)
  Receive Date: 20080117
  Receipt Date: 20080103
  Transmission Date: 20080703
  Serious: Yes (Hospitalization)
  Sender: FDA-Public Use
  Company Number: FR-WYE-H02131308

PATIENT
  Sex: Male

DRUGS (12)
  1. CORDARONE [Suspect]
     Dosage: 1 DF
     Route: 065
  2. COLCHIMAX [Suspect]
     Dosage: 1 DF
     Route: 048
  3. DI-ANTALVIC [Suspect]
     Dosage: UNKNOWN
     Route: 048
  4. FOZITEC [Concomitant]
     Dosage: UNKNOWN
     Route: 048
  5. AMBROXOL [Concomitant]
     Dosage: UNKNOWN
     Route: 048
  6. EUPHYLLINE [Concomitant]
     Dosage: UNKNOWN
     Route: 048
  7. BRONCHODUAL [Concomitant]
     Dosage: UNKNOWN
     Route: 055
  8. HYDROCORTISONE [Concomitant]
     Dosage: UNKNOWN
     Route: 065
  9. SURBRONC [Concomitant]
     Dosage: UNKNOWN
     Route: 065
  10. RANITIDINE HCL [Concomitant]
     Dosage: UNKNOWN
     Route: 065
  11. PREVISCAN [Suspect]
     Indication: ATRIAL FIBRILLATION
     Route: 048
     Dates: start: 20070923, end: 20071127
  12. LASIX [Concomitant]
     Dosage: UNKNOWN
     Route: 048

REACTIONS (3)
  - BLOOD CREATININE INCREASED [None]
  - HAEMATOMA [None]
  - HAEMOGLOBIN DECREASED [None]
